FAERS Safety Report 5053773-1 (Version None)
Quarter: 2006Q3

REPORT INFORMATION
  Report Type: 
  Country: None (occurrence: None)
  Receive Date: 20060712
  Receipt Date: 20060630
  Transmission Date: 20061208
  Serious: Yes (Other)
  Sender: FDA-Public Use
  Company Number: 2006082340

PATIENT
  Age: 54 Year
  Sex: Male

DRUGS (2)
  1. NORVASC [Suspect]
     Indication: HYPERTENSION
     Dosage: ORAL/A FEW DAYS
     Route: 048
  2. DIOVAN [Suspect]
     Indication: HYPERTENSION
     Dosage: ORAL
     Route: 048

REACTIONS (4)
  - DRUG ERUPTION [None]
  - DRUG INEFFECTIVE [None]
  - PHOTOSENSITIVITY REACTION [None]
  - PYREXIA [None]
